FAERS Safety Report 15385106 (Version 1)
Quarter: 2018Q4

REPORT INFORMATION
  Report Type: Spontaneous
  Country: FR (occurrence: FR)
  Receive Date: 20180914
  Receipt Date: 20180914
  Transmission Date: 20190204
  Serious: Yes (Hospitalization)
  Sender: FDA-Public Use
  Company Number: FR-TEVA-573083ISR

PATIENT
  Age: 67 Year
  Sex: Male
  Weight: 86 kg

DRUGS (8)
  1. CYTARABINE SANDOZ [Suspect]
     Active Substance: CYTARABINE
     Indication: ACUTE MYELOID LEUKAEMIA
     Dosage: 4400 MILLIGRAM DAILY; SALVAGE CHEMOTHERAPY
     Dates: start: 20141107
  2. POLARAMINE [Suspect]
     Active Substance: DEXCHLORPHENIRAMINE MALEATE
     Dosage: 5 MILLIGRAM DAILY; PREMEDICATION
     Route: 048
     Dates: start: 20141107
  3. POLARAMINE [Suspect]
     Active Substance: DEXCHLORPHENIRAMINE MALEATE
     Dosage: 5 MG, 1X/DAY, DAYS 1-4-7
     Route: 048
     Dates: start: 20141107, end: 20141113
  4. MYLOTARG [Suspect]
     Active Substance: GEMTUZUMAB OZOGAMICIN
     Indication: ACUTE LEUKAEMIA
     Dosage: 3 MG/M2 DAILY; SALVAGE CHEMOTHERAPY
     Dates: start: 20141107, end: 20141113
  5. ZOPHREN 8 MG/4 ML [Suspect]
     Active Substance: ONDANSETRON HYDROCHLORIDE
     Dosage: 2 DOSAGE FORMS DAILY; PREMEDICATION
     Route: 042
     Dates: start: 20141107
  6. ZOPHREN 8 MG/4 ML [Suspect]
     Active Substance: ONDANSETRON HYDROCHLORIDE
     Dosage: 8 MG, 2X/DAY, FROM D1 TO D6
     Route: 042
     Dates: start: 20141107, end: 20141112
  7. PARACETAMOL [Suspect]
     Active Substance: ACETAMINOPHEN
     Dosage: 3000 MILLIGRAM DAILY; PREMEDICATION
     Route: 048
     Dates: start: 20141107
  8. MITOXANTRONE TEVA [Suspect]
     Active Substance: MITOXANTRONE HYDROCHLORIDE
     Indication: ACUTE MYELOID LEUKAEMIA
     Dosage: 12 MG/M2 DAILY; SALVAGE CHEMOTHERAPY
     Route: 065
     Dates: start: 20141107, end: 20141108

REACTIONS (5)
  - Febrile neutropenia [Recovered/Resolved]
  - Vomiting [Recovered/Resolved]
  - Nausea [Recovered/Resolved]
  - Blood culture positive [Recovered/Resolved]
  - Diarrhoea [Recovered/Resolved]

NARRATIVE: CASE EVENT DATE: 201411
